FAERS Safety Report 18391235 (Version 1)
Quarter: 2020Q4

REPORT INFORMATION
  Report Type: Spontaneous
  Country: US (occurrence: US)
  Receive Date: 20201015
  Receipt Date: 20201015
  Transmission Date: 20210114
  Serious: Yes (Hospitalization)
  Sender: FDA-Public Use
  Company Number: None

PATIENT
  Age: 64 Year
  Sex: Male
  Weight: 120.4 kg

DRUGS (1)
  1. YESCARTA [Suspect]
     Active Substance: AXICABTAGENE CILOLEUCEL
     Indication: DIFFUSE LARGE B-CELL LYMPHOMA
     Dates: start: 20200910, end: 20200910

REACTIONS (5)
  - Confusional state [None]
  - Neurotoxicity [None]
  - Aphasia [None]
  - Lumbar puncture abnormal [None]
  - Pyrexia [None]

NARRATIVE: CASE EVENT DATE: 20200913
